FAERS Safety Report 12462482 (Version 1)
Quarter: 2016Q2

REPORT INFORMATION
  Report Type: Spontaneous
  Country: US (occurrence: US)
  Receive Date: 20160614
  Receipt Date: 20160614
  Transmission Date: 20160815
  Serious: Yes (Other)
  Sender: FDA-Public Use
  Company Number: US-ACCORD-040240

PATIENT
  Age: 60 Year
  Sex: Female
  Weight: 90.72 kg

DRUGS (5)
  1. CLONAZEPAM ACCORD [Suspect]
     Active Substance: CLONAZEPAM
     Indication: SEIZURE
     Dosage: STRENGTH: 2 MG
     Route: 048
  2. FYCOMPA [Concomitant]
     Active Substance: PERAMPANEL
  3. FISH OIL [Concomitant]
     Active Substance: FISH OIL
     Dosage: OMEGA 3-6-9,
  4. POTASSIUM [Concomitant]
     Active Substance: POTASSIUM
  5. TEGRETOL [Concomitant]
     Active Substance: CARBAMAZEPINE

REACTIONS (10)
  - Dizziness [Unknown]
  - Mood altered [Unknown]
  - Fatigue [Unknown]
  - Somnolence [Unknown]
  - Rash [Unknown]
  - Amnesia [Unknown]
  - Suicidal ideation [Unknown]
  - Paraesthesia oral [Unknown]
  - Skin exfoliation [Unknown]
  - Gait disturbance [Unknown]
